FAERS Safety Report 25364834 (Version 2)
Quarter: 2025Q3

REPORT INFORMATION
  Report Type: Spontaneous
  Country: US (occurrence: US)
  Receive Date: 20250527
  Receipt Date: 20250709
  Transmission Date: 20251020
  Serious: No
  Sender: IDORSIA PHARMACEUTICALS
  Company Number: US-IDORSIA-010371-2025-US

PATIENT
  Sex: Male

DRUGS (2)
  1. QUVIVIQ [Suspect]
     Active Substance: DARIDOREXANT
     Indication: Product used for unknown indication
     Route: 048
     Dates: start: 202504
  2. QUVIVIQ [Suspect]
     Active Substance: DARIDOREXANT
     Route: 048
     Dates: start: 20250508

REACTIONS (2)
  - Product dispensing error [Unknown]
  - No adverse event [Unknown]
